FAERS Safety Report 6998248-5 (Version None)
Quarter: 2010Q3

REPORT INFORMATION
  Report Type: 
  Country: None (occurrence: None)
  Receive Date: 20100920
  Receipt Date: 20090721
  Transmission Date: 20110219
  Serious: Yes (Other)
  Sender: FDA-Public Use
  Company Number: US-ASTRAZENECA-2007UW04354

PATIENT
  Age: 14881 Day
  Sex: Female

DRUGS (4)
  1. SEROQUEL [Suspect]
     Dosage: 25 TO 200 MG
     Route: 048
     Dates: start: 20000817
  2. BUSPAR [Concomitant]
     Dates: start: 20000808
  3. PROZAC [Concomitant]
     Dosage: 20 TO 40 MG
     Dates: start: 20000907
  4. RISPERDAL [Concomitant]
     Dosage: 2 TO 4 MG
     Dates: start: 20010405

REACTIONS (4)
  - DIABETES MELLITUS [None]
  - DIABETIC KETOACIDOSIS [None]
  - PANCREATITIS [None]
  - TYPE 1 DIABETES MELLITUS [None]
